FAERS Safety Report 10476190 (Version 1)
Quarter: 2014Q3

REPORT INFORMATION
  Report Type: Spontaneous
  Country: US (occurrence: None)
  Receive Date: 20140923
  Receipt Date: 20140923
  Transmission Date: 20150326
  Serious: Yes (Disabling, Other)
  Sender: FDA-Public Use
  Company Number: 2014-19488

PATIENT
  Age: 82 Year
  Sex: Female

DRUGS (19)
  1. EYLEA [Suspect]
     Active Substance: AFLIBERCEPT
     Indication: AGE-RELATED MACULAR DEGENERATION
     Dosage: AS NECESSARY
     Route: 031
     Dates: start: 20111209
  2. LECITHIN [Concomitant]
     Active Substance: LECITHIN
  3. BENAZEPRIL [Concomitant]
     Active Substance: BENAZEPRIL\BENAZEPRIL HYDROCHLORIDE
  4. FUROSEMIDE. [Concomitant]
     Active Substance: FUROSEMIDE
  5. CRESTOR (ROSUVASTATION CALCIUM) [Concomitant]
  6. MELOXICAM. [Concomitant]
     Active Substance: MELOXICAM
  7. MYSTINE (AZELASTINE HYDROCHLORIDE) [Concomitant]
  8. PRESERVISION (ASCORBIC ACID, BETACAROTENE, CUPRIC OXIDE, TOCOPHERYL ACETATE, ZINC OXIDE) [Concomitant]
  9. VITAMIN D3 [Concomitant]
     Active Substance: CHOLECALCIFEROL
  10. CALCIUM [Concomitant]
     Active Substance: CALCIUM
  11. ESTER-C /00008001/ (ASCORBIC ACID) [Concomitant]
  12. HERBAL EXTRACT NOS [Concomitant]
     Active Substance: HERBALS
  13. SYNTHROID [Concomitant]
     Active Substance: LEVOTHYROXINE SODIUM
  14. KRILL OIL (FISH OIL) [Concomitant]
  15. PATADAY (OLOPATADINE HYDROCHLORIDE) [Concomitant]
  16. VITAMIN B COMPLEX [Concomitant]
     Active Substance: CYANOCOBALAMIN\DEXPANTHENOL\NIACINAMIDE\PYRIDOXINE HYDROCHLORIDE\RIBOFLAVIN 5^-PHOSPHATE SODIUM\THIAMINE HYDROCHLORIDE\VITAMIN B COMPLEX
  17. BUFFERIN /00002701/ (ACETYLASALICYLIC ACID) [Concomitant]
  18. MSM [Concomitant]
     Active Substance: DIMETHYL SULFONE
  19. Q10 (UBIDECARENONE) [Concomitant]

REACTIONS (4)
  - Eye pain [None]
  - Visual impairment [None]
  - Eye inflammation [None]
  - Blindness transient [None]

NARRATIVE: CASE EVENT DATE: 20140426
